FAERS Safety Report 6581110-X (Version None)
Quarter: 2010Q1

REPORT INFORMATION
  Report Type: 
  Country: None (occurrence: None)
  Receive Date: 20100215
  Receipt Date: 20100205
  Transmission Date: 20100710
  Serious: Yes (Other)
  Sender: FDA-Public Use
  Company Number: PHHY2010CA06178

PATIENT
  Sex: Female

DRUGS (6)
  1. ACLASTA/ZOLEDRONATE T29581+A+ [Suspect]
     Indication: OSTEOPOROSIS
     Dosage: UNK
     Route: 042
     Dates: start: 20100127
  2. ACLASTA/ZOLEDRONATE T29581+A+ [Suspect]
     Dosage: UNK
     Dates: start: 20100127
  3. MICARDIS [Concomitant]
     Dosage: 80 MG, QD
  4. PLAVIX [Concomitant]
     Dosage: 75 MG, QD
  5. CRESTOR [Concomitant]
     Dosage: 40 MG, QD
  6. CALCIUM W/VITAMIN D NOS [Concomitant]
     Dosage: 1 DF, QD

REACTIONS (3)
  - BACK PAIN [None]
  - HERPES ZOSTER [None]
  - PAIN [None]
